FAERS Safety Report 4436315-0 (Version None)
Quarter: 2004Q3

REPORT INFORMATION
  Report Type: 
  Country: None (occurrence: None)
  Receive Date: 20040830
  Receipt Date: 20040728
  Transmission Date: 20050211
  Serious: No
  Sender: FDA-Public Use
  Company Number: US-BRISTOL-MYERS SQUIBB COMPANY-12653630

PATIENT
  Age: 74 Year
  Sex: Female
  Weight: 33 kg

DRUGS (1)
  1. ERBITUX [Suspect]
     Indication: ENDOMETRIAL CANCER
     Route: 042
     Dates: start: 20040619, end: 20040619

REACTIONS (2)
  - FATIGUE [None]
  - MALAISE [None]
